FAERS Safety Report 7302768-3 (Version None)
Quarter: 2011Q1

REPORT INFORMATION
  Report Type: 
  Country: None (occurrence: None)
  Receive Date: 20110218
  Receipt Date: 20110128
  Transmission Date: 20110831
  Serious: Yes (Hospitalization)
  Sender: FDA-Public Use
  Company Number: FR-GILEAD-2008-0016360

PATIENT
  Sex: Male
  Weight: 86.5 kg

DRUGS (7)
  1. BACTRIM F [Concomitant]
     Indication: PNEUMOCYSTIS JIROVECI PNEUMONIA
     Route: 048
     Dates: start: 20080325
  2. TRUVADA [Suspect]
     Indication: HIV INFECTION
     Route: 048
     Dates: start: 20080430
  3. FOSCAVIR [Concomitant]
  4. ROVALCYTE [Concomitant]
     Indication: CYTOMEGALOVIRUS INFECTION
     Route: 048
     Dates: start: 20080426
  5. KALETRA [Concomitant]
     Indication: HIV INFECTION
     Route: 048
     Dates: start: 20080430
  6. FUZEON [Concomitant]
     Indication: HIV INFECTION
     Route: 058
     Dates: start: 20080430
  7. AZADOSE [Concomitant]
     Indication: OPPORTUNISTIC INFECTION PROPHYLAXIS
     Dates: start: 20080414

REACTIONS (10)
  - CHEST X-RAY ABNORMAL [None]
  - COUGH [None]
  - VOMITING [None]
  - ASTHENIA [None]
  - PYREXIA [None]
  - SYSTEMIC INFLAMMATORY RESPONSE SYNDROME [None]
  - DIARRHOEA [None]
  - RENAL TUBULAR DISORDER [None]
  - GENERAL PHYSICAL HEALTH DETERIORATION [None]
  - NEUTROPENIA [None]
